FAERS Safety Report 4942758-9 (Version None)
Quarter: 2006Q1

REPORT INFORMATION
  Report Type: 
  Country: None (occurrence: None)
  Receive Date: 20060309
  Receipt Date: 20060221
  Transmission Date: 20060701
  Serious: Yes (Other)
  Sender: FDA-Public Use
  Company Number: 109211ISR

PATIENT
  Age: 20 Year
  Sex: Male

DRUGS (1)
  1. DOXYCYCLINE [Suspect]
     Dosage: 200 MILLIGRAM, ORAL
     Route: 048
     Dates: start: 20060131, end: 20060209

REACTIONS (1)
  - VISUAL ACUITY REDUCED [None]
